FAERS Safety Report 6071300-7 (Version None)
Quarter: 2009Q1

REPORT INFORMATION
  Report Type: 
  Country: None (occurrence: None)
  Receive Date: 20090205
  Receipt Date: 20090122
  Transmission Date: 20090719
  Serious: Yes (Death, Hospitalization)
  Sender: FDA-Public Use
  Company Number: 2009AL000403

PATIENT
  Age: 19 Year
  Sex: Female

DRUGS (1)
  1. PROPYLTHIOURACIL [Suspect]
     Indication: HYPOTHYROIDISM
     Dosage: 100 MG;TID
     Dates: start: 20070801

REACTIONS (6)
  - HEPATIC CIRRHOSIS [None]
  - HEPATIC FAILURE [None]
  - HEPATIC FIBROSIS [None]
  - HYPERTHYROIDISM [None]
  - LIVER INJURY [None]
  - LIVER TRANSPLANT [None]
